FAERS Safety Report 19135912 (Version 1)
Quarter: 2021Q2

REPORT INFORMATION
  Report Type: Report from Study
  Country: AT (occurrence: AT)
  Receive Date: 20210414
  Receipt Date: 20210414
  Transmission Date: 20210717
  Serious: Yes (Other)
  Sender: FDA-Public Use
  Company Number: AT-IPSEN BIOPHARMACEUTICALS, INC.-2021-09166

PATIENT

DRUGS (3)
  1. IRINOTECAN MONOHYDROCHLORIDE TRIHYDRATE [Suspect]
     Active Substance: IRINOTECAN HYDROCHLORIDE
     Indication: PANCREATIC CARCINOMA METASTATIC
     Dosage: DOSE NOT REPORTED
     Route: 065
  2. FLUOROURACIL. [Suspect]
     Active Substance: FLUOROURACIL
     Indication: PANCREATIC CARCINOMA METASTATIC
     Dosage: DOSE NOT REPORTED
     Route: 065
  3. LEUCOVORIN. [Suspect]
     Active Substance: LEUCOVORIN
     Indication: PANCREATIC CARCINOMA METASTATIC
     Dosage: DOSE NOT REPORTED
     Route: 065

REACTIONS (31)
  - Neutropenia [Unknown]
  - Polyneuropathy [Unknown]
  - Peripheral sensory neuropathy [Unknown]
  - Paraesthesia [Unknown]
  - Pneumonia [Unknown]
  - Urinary tract infection [Unknown]
  - Neutrophil count decreased [Unknown]
  - General physical health deterioration [Unknown]
  - Palmar-plantar erythrodysaesthesia syndrome [Unknown]
  - Thrombocytopenia [Unknown]
  - Hypokalaemia [Unknown]
  - Fatigue [Unknown]
  - Decreased appetite [Unknown]
  - Rash [Unknown]
  - Vomiting [Unknown]
  - Constipation [Unknown]
  - White blood cell count decreased [Unknown]
  - Dyspnoea [Unknown]
  - Taste disorder [Unknown]
  - Epistaxis [Unknown]
  - Febrile infection [Unknown]
  - Alopecia [Unknown]
  - Oedema peripheral [Unknown]
  - Febrile neutropenia [Unknown]
  - Leukopenia [Unknown]
  - Platelet count decreased [Unknown]
  - Dizziness [Unknown]
  - Diarrhoea [Unknown]
  - Nausea [Unknown]
  - Anaemia [Unknown]
  - Pyrexia [Unknown]
